FAERS Safety Report 10263103 (Version 2)
Quarter: 2014Q2

REPORT INFORMATION
  Report Type: Report from Study
  Country: US (occurrence: US)
  Receive Date: 20140626
  Receipt Date: 20140626
  Transmission Date: 20141212
  Serious: Yes (Other)
  Sender: FDA-Public Use
  Company Number: US-MYLANLABS-2014S1001477

PATIENT
  Age: 23 Year
  Sex: Male
  Weight: 92.53 kg

DRUGS (2)
  1. CLOZAPINE TABLETS [Suspect]
     Indication: THINKING ABNORMAL
     Dates: start: 201401, end: 201402
  2. CLOZAPINE TABLETS [Suspect]
     Indication: OFF LABEL USE
     Dates: start: 201401, end: 201402

REACTIONS (1)
  - Granulocytopenia [Not Recovered/Not Resolved]
